FAERS Safety Report 20346870 (Version 1)
Quarter: 2022Q1

REPORT INFORMATION
  Report Type: Spontaneous
  Country: CN (occurrence: CN)
  Receive Date: 20220118
  Receipt Date: 20220118
  Transmission Date: 20220423
  Serious: Yes (Other)
  Sender: FDA-Public Use
  Company Number: CN-PFIZER INC-202200020700

PATIENT
  Age: 59 Year
  Sex: Female
  Weight: 61 kg

DRUGS (2)
  1. CEFOPERAZONE SODIUM\SULBACTAM SODIUM [Suspect]
     Active Substance: CEFOPERAZONE SODIUM\SULBACTAM SODIUM
     Indication: Pneumonia
     Dosage: 3.000 G, 3X/DAY
     Route: 041
     Dates: start: 20211101, end: 20211108
  2. AZITHROMYCIN [Suspect]
     Active Substance: AZITHROMYCIN
     Indication: Pneumonia
     Dosage: 0.250 G, 1X/DAY
     Route: 048
     Dates: start: 20211101, end: 20211105

REACTIONS (5)
  - Nausea [Recovering/Resolving]
  - Decreased appetite [Recovering/Resolving]
  - Dizziness [Recovering/Resolving]
  - Off label use [Unknown]
  - Off label use [Unknown]

NARRATIVE: CASE EVENT DATE: 20211101
